FAERS Safety Report 10011857 (Version 1)
Quarter: 2014Q1

REPORT INFORMATION
  Report Type: Spontaneous
  Country: US (occurrence: None)
  Receive Date: 20140312
  Receipt Date: 20140312
  Transmission Date: 20141002
  Serious: Yes (Hospitalization)
  Sender: FDA-Public Use
  Company Number: UTC-045383

PATIENT
  Age: 48 Year
  Sex: Female
  Weight: 77 kg

DRUGS (2)
  1. REMODULIN [Suspect]
     Indication: COR PULMONALE CHRONIC
     Dosage: 0.04 UG/KG, 1 IN 1 MIN
     Route: 041
     Dates: start: 20140211
  2. ADCIRCA (TADALAFIL) [Concomitant]

REACTIONS (1)
  - Hypertension [None]
